FAERS Safety Report 23896637 (Version 1)
Quarter: 2024Q2

REPORT INFORMATION
  Report Type: Other
  Country: US (occurrence: None)
  Receive Date: 20240524
  Receipt Date: 20240524
  Transmission Date: 20240716
  Serious: Yes (Other)
  Sender: FDA-Public Use
  Company Number: US-ROCHE-3565612

PATIENT
  Age: 86 Year
  Sex: Female
  Weight: 74.8 kg

DRUGS (12)
  1. ACTEMRA [Suspect]
     Active Substance: TOCILIZUMAB
     Indication: Giant cell arteritis
     Dosage: INJECT 1 PEN (162MG) SUBCUTANEOUSLY ONCE EVERY 7 DAY(S)
     Route: 058
     Dates: start: 20240429, end: 20240506
  2. ACTEMRA [Suspect]
     Active Substance: TOCILIZUMAB
     Indication: Polymyalgia rheumatica
  3. ALPRAZOLAM [Concomitant]
     Active Substance: ALPRAZOLAM
     Route: 048
  4. ATORVASTATIN [Concomitant]
     Active Substance: ATORVASTATIN
     Route: 048
  5. BACLOFEN [Concomitant]
     Active Substance: BACLOFEN
     Route: 048
  6. DOCUSATE SODIUM [Concomitant]
     Active Substance: DOCUSATE SODIUM
     Route: 048
  7. FLUOROURACIL [Concomitant]
     Active Substance: FLUOROURACIL
  8. LEVOTHYROXINE [Concomitant]
     Active Substance: LEVOTHYROXINE\LEVOTHYROXINE SODIUM
     Route: 048
  9. METOPROLOL SUCCINATE [Concomitant]
     Active Substance: METOPROLOL SUCCINATE
     Route: 048
  10. NYSTATIN [Concomitant]
     Active Substance: NYSTATIN
  11. OMEPRAZOLE [Concomitant]
     Active Substance: DONEPEZIL HYDROCHLORIDE\OMEPRAZOLE\OMEPRAZOLE MAGNESIUM
  12. POLYETHYLENE GLYCOL [Concomitant]
     Active Substance: POLYETHYLENE GLYCOL

REACTIONS (18)
  - Asthenia [Not Recovered/Not Resolved]
  - Hypokalaemia [Not Recovered/Not Resolved]
  - Malaise [Unknown]
  - Dyspnoea [Unknown]
  - Back pain [Unknown]
  - Gait inability [Unknown]
  - Troponin increased [Unknown]
  - Blood potassium decreased [Unknown]
  - Blood chloride decreased [Unknown]
  - Anion gap increased [Unknown]
  - Blood urea nitrogen/creatinine ratio increased [Unknown]
  - Blood albumin decreased [Unknown]
  - Blood alkaline phosphatase decreased [Unknown]
  - Alanine aminotransferase increased [Unknown]
  - Blood magnesium decreased [Unknown]
  - Neutrophil count increased [Unknown]
  - Lymphocyte count decreased [Unknown]
  - Hiatus hernia [Unknown]

NARRATIVE: CASE EVENT DATE: 20240506
